FAERS Safety Report 6263395-2 (Version None)
Quarter: 2009Q3

REPORT INFORMATION
  Report Type: 
  Country: None (occurrence: None)
  Receive Date: 20090710
  Receipt Date: 20081120
  Transmission Date: 20100115
  Serious: No
  Sender: FDA-Public Use
  Company Number: A0752454A

PATIENT
  Sex: Female

DRUGS (8)
  1. FLOVENT [Suspect]
     Indication: ASTHMA
     Dosage: 2PUFF TWICE PER DAY
     Route: 055
     Dates: start: 20070201
  2. SYNTHROID [Concomitant]
  3. PREVACID [Concomitant]
  4. ALLEGRA D 24 HOUR [Concomitant]
  5. VALTREX [Concomitant]
  6. TYLENOL [Concomitant]
  7. MOTRIN [Concomitant]
  8. COMBIVENT [Concomitant]

REACTIONS (3)
  - DRUG INEFFECTIVE [None]
  - PRODUCT QUALITY ISSUE [None]
  - WHEEZING [None]
